FAERS Safety Report 13179302 (Version 1)
Quarter: 2017Q1

REPORT INFORMATION
  Report Type: Spontaneous
  Country: US (occurrence: US)
  Receive Date: 20170202
  Receipt Date: 20170202
  Transmission Date: 20170428
  Serious: No
  Sender: FDA-Public Use
  Company Number: US-MYLANLABS-2016M1043711

PATIENT
  Sex: Female

DRUGS (1)
  1. VALSARTAN TABLETS, USP [Suspect]
     Active Substance: VALSARTAN
     Indication: HYPERTENSION
     Dosage: 80 MG, QD
     Route: 048
     Dates: start: 2016

REACTIONS (3)
  - Drug ineffective [Not Recovered/Not Resolved]
  - Heart rate decreased [Recovered/Resolved]
  - Dizziness [Not Recovered/Not Resolved]

NARRATIVE: CASE EVENT DATE: 2016
